FAERS Safety Report 14752301 (Version 4)
Quarter: 2018Q2

REPORT INFORMATION
  Report Type: Spontaneous
  Country: GR (occurrence: GR)
  Receive Date: 20180412
  Receipt Date: 20180509
  Transmission Date: 20180711
  Serious: Yes (Other)
  Sender: FDA-Public Use
  Company Number: GR-CELLTRION INC.-2018GR019128

PATIENT

DRUGS (1)
  1. INFLECTRA [Suspect]
     Active Substance: INFLIXIMAB-DYYB
     Indication: ANKYLOSING SPONDYLITIS
     Dosage: 4 FLACONS
     Route: 065

REACTIONS (5)
  - Chest pain [Recovered/Resolved]
  - Pallor [Recovered/Resolved]
  - Dyspnoea [Recovered/Resolved]
  - Dizziness [Recovered/Resolved]
  - Altered state of consciousness [Recovered/Resolved]
